FAERS Safety Report 7585067-4 (Version None)
Quarter: 2011Q2

REPORT INFORMATION
  Report Type: 
  Country: None (occurrence: None)
  Receive Date: 20110630
  Receipt Date: 20110621
  Transmission Date: 20111010
  Serious: Yes (Hospitalization, Disabling, Other)
  Sender: FDA-Public Use
  Company Number: US-ASTRAZENECA-2010SE23064

PATIENT
  Age: 42 Year
  Sex: Female
  Weight: 55.8 kg

DRUGS (20)
  1. NEXIUM [Suspect]
     Indication: GASTROOESOPHAGEAL REFLUX DISEASE
     Route: 048
  2. ATENOLOL [Concomitant]
     Indication: TACHYCARDIA
     Route: 048
  3. PREDNISONE [Concomitant]
     Route: 048
  4. ZYRTEC [Concomitant]
     Indication: MULTIPLE ALLERGIES
  5. OTC IRON SUPPLEMENT [Concomitant]
     Dosage: DAILY
  6. METHOTREXATE [Concomitant]
     Route: 058
  7. SYNTHROID [Concomitant]
     Indication: HYPOTHYROIDISM
     Route: 048
  8. DEPAKOTE [Concomitant]
     Route: 048
  9. AMBIEN [Concomitant]
     Indication: INSOMNIA
     Route: 048
  10. SEROQUEL [Suspect]
     Route: 048
  11. CITAMEL [Concomitant]
     Route: 048
  12. CLONAZEPAM [Concomitant]
     Indication: ANXIETY
     Route: 048
  13. MULTI-VITAMIN [Concomitant]
     Dosage: DAILY
  14. SEROQUEL [Suspect]
     Indication: BIPOLAR I DISORDER
     Route: 048
     Dates: start: 20060101
  15. SEROQUEL [Suspect]
     Route: 048
  16. HYDROCODONE [Concomitant]
     Indication: PAIN
     Dosage: 10/325 EVERY 6 HOURS
     Route: 048
  17. ASPIRIN [Concomitant]
     Route: 048
  18. PAXIL [Concomitant]
     Indication: DEPRESSION
     Route: 048
  19. VITAMIN B-12 [Concomitant]
     Route: 058
  20. CALCIUM CARBONATE [Concomitant]

REACTIONS (28)
  - PERIORBITAL HAEMATOMA [None]
  - INSOMNIA [None]
  - NAUSEA [None]
  - SURGERY [None]
  - GRAND MAL CONVULSION [None]
  - ABDOMINAL PAIN [None]
  - VOMITING [None]
  - UPPER LIMB FRACTURE [None]
  - CONVULSION [None]
  - MALAISE [None]
  - THYROID CANCER [None]
  - OROPHARYNGEAL PAIN [None]
  - TOOTH FRACTURE [None]
  - CONTUSION [None]
  - GASTRIC DISORDER [None]
  - GASTROOESOPHAGEAL REFLUX DISEASE [None]
  - SOMNOLENCE [None]
  - RECURRENT CANCER [None]
  - ANXIETY [None]
  - TACHYCARDIA [None]
  - WRIST FRACTURE [None]
  - RHEUMATOID ARTHRITIS [None]
  - HYPOTHYROIDISM [None]
  - DRUG DOSE OMISSION [None]
  - FEMALE GENITAL OPERATION [None]
  - MUSCULAR WEAKNESS [None]
  - HAND FRACTURE [None]
  - TENDON INJURY [None]
